FAERS Safety Report 15414879 (Version 4)
Quarter: 2018Q4

REPORT INFORMATION
  Report Type: Report from Study
  Country: US (occurrence: US)
  Receive Date: 20180921
  Receipt Date: 20181026
  Transmission Date: 20190204
  Serious: No
  Sender: FDA-Public Use
  Company Number: PHHY2018US103501

PATIENT
  Sex: Female

DRUGS (1)
  1. COSENTYX [Suspect]
     Active Substance: SECUKINUMAB
     Indication: PSORIASIS
     Dosage: 300 MG, QMO
     Route: 058
     Dates: start: 20160607

REACTIONS (7)
  - Skin discolouration [Recovered/Resolved]
  - Psoriasis [Not Recovered/Not Resolved]
  - Skin mass [Recovered/Resolved]
  - Injection site reaction [Recovered/Resolved]
  - Macule [Not Recovered/Not Resolved]
  - Drug effect incomplete [Unknown]
  - Pain [Unknown]
